FAERS Safety Report 20844103 (Version 1)
Quarter: 2022Q2

REPORT INFORMATION
  Report Type: Spontaneous
  Country: US (occurrence: None)
  Receive Date: 20220517
  Receipt Date: 20220517
  Transmission Date: 20220721
  Serious: No
  Sender: FDA-Public Use
  Company Number: None

PATIENT
  Age: 53 Year
  Sex: Female

DRUGS (2)
  1. BOTOX [Suspect]
     Active Substance: ONABOTULINUMTOXINA
     Indication: Migraine
     Route: 030
     Dates: start: 202001
  2. ALMOVIG [Concomitant]

REACTIONS (3)
  - COVID-19 [None]
  - Migraine [None]
  - Disturbance in attention [None]

NARRATIVE: CASE EVENT DATE: 20220112
